FAERS Safety Report 11079501 (Version 1)
Quarter: 2015Q2

REPORT INFORMATION
  Report Type: Other
  Country: DE (occurrence: DE)
  Receive Date: 20150430
  Receipt Date: 20150430
  Transmission Date: 20150821
  Serious: Yes (Hospitalization)
  Sender: FDA-Public Use
  Company Number: DE-MYLANLABS-2015M1012833

PATIENT

DRUGS (6)
  1. OXCARBAZEPIN [Suspect]
     Active Substance: OXCARBAZEPINE
     Indication: TRIGEMINAL NEURALGIA
     Dosage: DAILY DOSE: 1800 MG MILLGRAM(S) EVERY DAYS
     Route: 048
  2. GABAPENTIN. [Suspect]
     Active Substance: GABAPENTIN
     Indication: TRIGEMINAL NEURALGIA
     Dosage: UNK
     Route: 048
  3. AMINEURIN [Suspect]
     Active Substance: AMITRIPTYLINE HYDROCHLORIDE
     Indication: TRIGEMINAL NEURALGIA
     Dosage: UNK
     Route: 048
  4. OXYGESIC AKUT [Suspect]
     Active Substance: OXYCODONE
     Indication: TRIGEMINAL NEURALGIA
     Dosage: UNK
     Route: 048
  5. OXYCODONE [Suspect]
     Active Substance: OXYCODONE
     Indication: TRIGEMINAL NEURALGIA
     Dosage: DAILY DOSE: 140 MG MILLGRAM(S) EVERY DAYS
     Route: 048
  6. TETRAHYDROCANNABINOL [Concomitant]
     Active Substance: DRONABINOL
     Dosage: UNK
     Route: 048

REACTIONS (2)
  - Loss of consciousness [Unknown]
  - Road traffic accident [Unknown]

NARRATIVE: CASE EVENT DATE: 20140308
